FAERS Safety Report 8451182-6 (Version None)
Quarter: 2012Q2

REPORT INFORMATION
  Report Type: 
  Country: None (occurrence: None)
  Receive Date: 20120620
  Receipt Date: 20120223
  Transmission Date: 20120825
  Serious: No
  Sender: FDA-Public Use
  Company Number: US-VERTEX PHARMACEUTICALS INC.-AE-2011-003414

PATIENT
  Sex: Male
  Weight: 97.61 kg

DRUGS (8)
  1. INCIVEK [Suspect]
     Indication: HEPATITIS C
     Route: 048
     Dates: start: 20110916, end: 20111111
  2. PEGINTERFERON ALFA-2A [Concomitant]
     Indication: HEPATITIS C
     Route: 058
     Dates: start: 20110916, end: 20111211
  3. TRIAMCINOLONE [Concomitant]
     Route: 061
  4. BENADRYL [Concomitant]
     Route: 048
  5. HYDROXYZINE [Concomitant]
     Route: 048
  6. TRAMADOL HCL [Concomitant]
     Route: 048
  7. HYDROCODONE [Concomitant]
     Route: 048
  8. RIBAVIRIN [Concomitant]
     Indication: HEPATITIS C
     Route: 048
     Dates: start: 20110916, end: 20111211

REACTIONS (4)
  - RASH GENERALISED [None]
  - OEDEMA PERIPHERAL [None]
  - DRY SKIN [None]
  - PRURITUS GENERALISED [None]
